FAERS Safety Report 8170361-9 (Version None)
Quarter: 2012Q1

REPORT INFORMATION
  Report Type: 
  Country: None (occurrence: None)
  Receive Date: 20120228
  Receipt Date: 20120222
  Transmission Date: 20120608
  Serious: Yes (Other)
  Sender: FDA-Public Use
  Company Number: MX-BAYER-2012-017588

PATIENT
  Age: 20 Year
  Sex: Female

DRUGS (2)
  1. YASMIN [Suspect]
     Indication: CONTRACEPTION
     Dosage: 3 MG, QD
     Route: 048
  2. ACETAMINOPHEN [Concomitant]

REACTIONS (2)
  - HAEMORRHAGE IN PREGNANCY [None]
  - PREGNANCY [None]
